FAERS Safety Report 23685271 (Version 8)
Quarter: 2024Q3

REPORT INFORMATION
  Report Type: Spontaneous
  Country: FR (occurrence: FR)
  Receive Date: 20240329
  Receipt Date: 20240930
  Transmission Date: 20241017
  Serious: Yes (Hospitalization)
  Sender: NOVO NORDISK
  Company Number: FR-NOVOPROD-1192001

PATIENT
  Age: 47 Year
  Sex: Female

DRUGS (6)
  1. NORDITROPIN [Suspect]
     Active Substance: SOMATROPIN
     Dosage: 0.2 MG, QD
  2. NORDITROPIN [Suspect]
     Active Substance: SOMATROPIN
     Indication: Hypopituitarism
     Dosage: 2.5 MG, QD
  3. NORDITROPIN [Suspect]
     Active Substance: SOMATROPIN
     Dosage: 0.275 MG, QD
     Dates: start: 20240112
  4. NORDITROPIN [Suspect]
     Active Substance: SOMATROPIN
     Dosage: 0.25 MG, QD
     Dates: start: 20240127
  5. NORDITROPIN [Suspect]
     Active Substance: SOMATROPIN
     Dosage: 0.2 MG, QD
     Dates: start: 20240214
  6. OMNITROPE [Concomitant]
     Active Substance: SOMATROPIN
     Indication: Product used for unknown indication
     Dosage: UNK
     Dates: start: 20231201

REACTIONS (11)
  - Growth hormone deficiency [Unknown]
  - Insulin-like growth factor increased [Unknown]
  - Blood growth hormone decreased [Unknown]
  - Endometrial disorder [Unknown]
  - Blood glucose increased [Recovered/Resolved]
  - Glycosylated haemoglobin increased [Recovered/Resolved]
  - Insulin-like growth factor abnormal [Unknown]
  - Blood growth hormone decreased [Unknown]
  - Drug ineffective [Unknown]
  - Product quality issue [Unknown]
  - Product storage error [Unknown]

NARRATIVE: CASE EVENT DATE: 20240124
